FAERS Safety Report 19042279 (Version 2)
Quarter: 2021Q1

REPORT INFORMATION
  Report Type: Spontaneous
  Country: DE (occurrence: DE)
  Receive Date: 20210323
  Receipt Date: 20210330
  Transmission Date: 20210420
  Serious: Yes (Other)
  Sender: FDA-Public Use
  Company Number: DE-AUROBINDO-AUR-APL-2021-010897

PATIENT
  Sex: Female
  Weight: 57 kg

DRUGS (1)
  1. TOPIRAMAT AUROBINDO FILMTABLETTEN 100MG [Suspect]
     Active Substance: TOPIRAMATE
     Indication: MIGRAINE PROPHYLAXIS
     Dosage: 100 MILLIGRAM, ONCE A DAY
     Route: 048
     Dates: start: 201608, end: 202008

REACTIONS (7)
  - Dizziness [Recovered/Resolved]
  - Memory impairment [Recovered/Resolved]
  - Weight increased [Not Recovered/Not Resolved]
  - Headache [Not Recovered/Not Resolved]
  - Hallucination, auditory [Recovered/Resolved]
  - Paraesthesia [Recovered/Resolved]
  - Withdrawal syndrome [Not Recovered/Not Resolved]

NARRATIVE: CASE EVENT DATE: 201608
